FAERS Safety Report 6824572-2 (Version None)
Quarter: 2010Q3

REPORT INFORMATION
  Report Type: 
  Country: None (occurrence: None)
  Receive Date: 20100708
  Receipt Date: 20070310
  Transmission Date: 20110219
  Serious: Yes (Other)
  Sender: FDA-Public Use
  Company Number: US-PFIZER INC-2006136363

PATIENT
  Sex: Male
  Weight: 130.6 kg

DRUGS (8)
  1. CHANTIX [Suspect]
     Indication: EX-TOBACCO USER
     Dates: start: 20060901, end: 20060915
  2. HYZAAR [Concomitant]
     Dosage: 12.5-50MG PER DAY
  3. CITALOPRAM HYDROBROMIDE [Concomitant]
  4. OMEPRAZOLE [Concomitant]
  5. LORAZEPAM [Concomitant]
     Dosage: AS NEEDED
  6. OXAPROZIN [Concomitant]
  7. LORTAB [Concomitant]
     Dosage: AS NEEDED
  8. ALBUTEROL [Concomitant]
     Dosage: AS NEEDED
     Route: 048

REACTIONS (2)
  - BLISTER [None]
  - RASH [None]
